FAERS Safety Report 20126738 (Version 1)
Quarter: 2021Q4

REPORT INFORMATION
  Report Type: Spontaneous
  Country: CN (occurrence: CN)
  Receive Date: 20211129
  Receipt Date: 20211129
  Transmission Date: 20220303
  Serious: No
  Sender: FDA-Public Use
  Company Number: CN-LUPIN PHARMACEUTICALS INC.-2021-23266

PATIENT
  Age: 31 Year
  Sex: Female

DRUGS (11)
  1. LEVOTHYROXINE [Suspect]
     Active Substance: LEVOTHYROXINE
     Indication: Hypopituitarism
     Dosage: UNK (BEFORE PREGNANCY)
     Route: 065
  2. LEVOTHYROXINE [Suspect]
     Active Substance: LEVOTHYROXINE
     Dosage: UNK (BEFORE PREGNANCY)
     Route: 065
  3. LEVOTHYROXINE [Suspect]
     Active Substance: LEVOTHYROXINE
     Dosage: UNK (DURING PREGNANCY)
     Route: 065
  4. HUMAN CHORIONIC GONADOTROPIN [Suspect]
     Active Substance: GONADOTROPHIN, CHORIONIC
     Indication: Luteal phase deficiency
     Dosage: 10000 INTERNATIONAL UNIT
     Route: 065
  5. ESTRADIOL VALERATE [Suspect]
     Active Substance: ESTRADIOL VALERATE
     Indication: Luteal phase deficiency
     Dosage: 1 MILLIGRAM, QD
     Route: 065
  6. ESTRADIOL VALERATE [Suspect]
     Active Substance: ESTRADIOL VALERATE
     Dosage: 20 MILLIGRAM, QD
     Route: 065
  7. DUPHASTON [Suspect]
     Active Substance: DYDROGESTERONE
     Indication: Luteal phase deficiency
     Dosage: 20 MILLIGRAM, QD
     Route: 065
  8. DUPHASTON [Suspect]
     Active Substance: DYDROGESTERONE
     Dosage: 30 MILLIGRAM, QD
     Route: 065
  9. CORTISONE [Suspect]
     Active Substance: CORTISONE
     Indication: Hypopituitarism
     Dosage: UNK (BEFORE PREGNANCY)
     Route: 065
  10. CORTISONE [Suspect]
     Active Substance: CORTISONE
     Dosage: UNK (BEFORE PREGNANCY)
     Route: 065
  11. CORTISONE [Suspect]
     Active Substance: CORTISONE
     Dosage: UNK (DURING PREGNANCY)
     Route: 065

REACTIONS (1)
  - Exposure during pregnancy [Unknown]
